FAERS Safety Report 12199082 (Version 1)
Quarter: 2016Q1

REPORT INFORMATION
  Report Type: Spontaneous
  Country: FR (occurrence: FR)
  Receive Date: 20160322
  Receipt Date: 20160322
  Transmission Date: 20160526
  Serious: Yes (Hospitalization)
  Sender: FDA-Public Use
  Company Number: FR-JNJFOC-20160313201

PATIENT
  Age: 50 Year
  Sex: Female

DRUGS (19)
  1. SKENAN [Interacting]
     Active Substance: MORPHINE SULFATE
     Indication: PRODUCT USED FOR UNKNOWN INDICATION
     Route: 048
     Dates: end: 20160127
  2. DETENSOL [Concomitant]
     Route: 065
  3. DEPAKINE CHRONO [Concomitant]
     Active Substance: VALPROATE SODIUM
     Route: 065
  4. DIVIN [Concomitant]
     Route: 065
  5. GLYCERYL TRINITRATE [Concomitant]
     Active Substance: NITROGLYCERIN
     Route: 065
  6. IMODIUM [Suspect]
     Active Substance: LOPERAMIDE HYDROCHLORIDE
     Indication: DIARRHOEA
     Route: 048
     Dates: end: 20160127
  7. ACTISKENAN [Interacting]
     Active Substance: MORPHINE SULFATE
     Indication: PRODUCT USED FOR UNKNOWN INDICATION
     Route: 048
     Dates: end: 20160127
  8. PLAVIX [Concomitant]
     Active Substance: CLOPIDOGREL BISULFATE
     Route: 065
  9. LYRICA [Concomitant]
     Active Substance: PREGABALIN
     Route: 065
  10. VASTAN [Concomitant]
     Route: 065
  11. IMODIUM [Suspect]
     Active Substance: LOPERAMIDE HYDROCHLORIDE
     Route: 048
  12. LANZOR [Interacting]
     Active Substance: LANSOPRAZOLE
     Indication: PRODUCT USED FOR UNKNOWN INDICATION
     Route: 048
     Dates: end: 20160127
  13. CLAMOXYL [Concomitant]
     Active Substance: AMOXICILLIN\CLAVULANIC ACID
     Route: 065
  14. VENLAFAXINE [Concomitant]
     Active Substance: VENLAFAXINE HYDROCHLORIDE
     Route: 065
  15. URBANYL [Concomitant]
     Active Substance: CLOBAZAM
     Route: 065
  16. LASILIX [Concomitant]
     Active Substance: FUROSEMIDE
     Route: 065
  17. COVERSYL [Concomitant]
     Active Substance: PERINDOPRIL
     Route: 065
  18. ALDACTONE [Concomitant]
     Active Substance: SPIRONOLACTONE
     Route: 065
  19. LEXOMIL [Concomitant]
     Active Substance: BROMAZEPAM
     Route: 065

REACTIONS (4)
  - Urinary retention [Recovered/Resolved]
  - Drug interaction [Unknown]
  - Coma [Recovered/Resolved]
  - Disturbance in attention [Recovered/Resolved]

NARRATIVE: CASE EVENT DATE: 20160116
